FAERS Safety Report 15682539 (Version 1)
Quarter: 2018Q4

REPORT INFORMATION
  Report Type: Report from Study
  Country: US (occurrence: US)
  Receive Date: 20181203
  Receipt Date: 20181203
  Transmission Date: 20190205
  Serious: No
  Sender: FDA-Public Use
  Company Number: PHEH2018US049787

PATIENT
  Sex: Male
  Weight: 37 kg

DRUGS (1)
  1. OMNITROPE [Suspect]
     Active Substance: SOMATROPIN
     Indication: HYPOPITUITARISM
     Dosage: 1.8 MG, QD
     Route: 058
     Dates: start: 20170915

REACTIONS (2)
  - Nausea [Unknown]
  - Headache [Unknown]
